FAERS Safety Report 18179743 (Version 3)
Quarter: 2021Q1

REPORT INFORMATION
  Report Type: Report from Study
  Country: CA (occurrence: CA)
  Receive Date: 20200821
  Receipt Date: 20210223
  Transmission Date: 20210419
  Serious: Yes (Death, Other)
  Sender: FDA-Public Use
  Company Number: NVSC2020CA226863

PATIENT
  Age: 63 Year
  Sex: Female
  Weight: 45 kg

DRUGS (8)
  1. DABRAFENIB [Suspect]
     Active Substance: DABRAFENIB
     Indication: OVARIAN CANCER
     Dosage: UNK
     Route: 048
  2. LAX?A?DAY [Concomitant]
     Active Substance: POLYETHYLENE GLYCOL 3350
     Indication: PRODUCT USED FOR UNKNOWN INDICATION
     Dosage: 34 G, QD (PRN)
     Route: 048
  3. TINZAPARIN [Concomitant]
     Active Substance: TINZAPARIN
     Indication: PRODUCT USED FOR UNKNOWN INDICATION
     Dosage: 8750 IU, QD
     Route: 058
  4. DEXLANSOPRAZOLE [Concomitant]
     Active Substance: DEXLANSOPRAZOLE
     Indication: PRODUCT USED FOR UNKNOWN INDICATION
     Dosage: 30 MG, BID
     Route: 048
  5. CITALOPRAM [Concomitant]
     Active Substance: CITALOPRAM HYDROBROMIDE
     Indication: PRODUCT USED FOR UNKNOWN INDICATION
     Dosage: 20 MG, QD
     Route: 065
  6. METOCLOPRAMIDE. [Concomitant]
     Active Substance: METOCLOPRAMIDE
     Indication: PRODUCT USED FOR UNKNOWN INDICATION
     Dosage: 5 MG, QID (PRN)
     Route: 048
  7. ACETAMINOPHEN. [Concomitant]
     Active Substance: ACETAMINOPHEN
     Indication: PRODUCT USED FOR UNKNOWN INDICATION
     Dosage: 1 G, TID (PRN)
     Route: 048
  8. TRAMETINIB [Suspect]
     Active Substance: TRAMETINIB
     Indication: OVARIAN CANCER
     Dosage: 2 MG, QD
     Route: 048
     Dates: start: 20200714, end: 20201015

REACTIONS (6)
  - Malignant neoplasm progression [Fatal]
  - Pulmonary embolism [Recovering/Resolving]
  - Lymphadenopathy [Unknown]
  - Ovarian cancer [Fatal]
  - Drug ineffective [Fatal]
  - Pleural effusion [Unknown]

NARRATIVE: CASE EVENT DATE: 20200720
